FAERS Safety Report 25013445 (Version 1)
Quarter: 2025Q1

REPORT INFORMATION
  Report Type: Spontaneous
  Country: US (occurrence: US)
  Receive Date: 20250226
  Receipt Date: 20250226
  Transmission Date: 20250408
  Serious: No
  Sender: UCB
  Company Number: US-UCBSA-2024015235

PATIENT
  Age: 11 Year
  Sex: Male

DRUGS (5)
  1. LEVETIRACETAM [Suspect]
     Active Substance: LEVETIRACETAM
     Indication: Cerebrohepatorenal syndrome
  2. LEVETIRACETAM [Suspect]
     Active Substance: LEVETIRACETAM
     Indication: Off label use
  3. FELBAMATE [Suspect]
     Active Substance: FELBAMATE
     Indication: Cerebrohepatorenal syndrome
  4. TOPIRAMATE [Suspect]
     Active Substance: TOPIRAMATE
     Indication: Cerebrohepatorenal syndrome
  5. EPIDIOLEX [Suspect]
     Active Substance: CANNABIDIOL
     Indication: Cerebrohepatorenal syndrome

REACTIONS (2)
  - Multiple-drug resistance [Unknown]
  - Off label use [Unknown]
